FAERS Safety Report 11669158 (Version 1)
Quarter: 2015Q4

REPORT INFORMATION
  Report Type: Spontaneous
  Country: US (occurrence: US)
  Receive Date: 20151027
  Receipt Date: 20151027
  Transmission Date: 20160304
  Serious: No
  Sender: FDA-Public Use
  Company Number: US-ELI_LILLY_AND_COMPANY-US201004000751

PATIENT
  Age: 53 Year
  Sex: Female

DRUGS (3)
  1. FORTEO [Suspect]
     Active Substance: TERIPARATIDE
     Dates: end: 20100331
  2. HORMONES NOS [Concomitant]
     Active Substance: UNSPECIFIED INGREDIENT
     Route: 061
  3. FORTEO [Suspect]
     Active Substance: TERIPARATIDE

REACTIONS (2)
  - Nausea [Recovering/Resolving]
  - Bone pain [Recovering/Resolving]
